FAERS Safety Report 7948990-4 (Version None)
Quarter: 2011Q4

REPORT INFORMATION
  Report Type: 
  Country: None (occurrence: None)
  Receive Date: 20111130
  Receipt Date: 20111123
  Transmission Date: 20120403
  Serious: Yes (Death, Hospitalization)
  Sender: FDA-Public Use
  Company Number: US-PFIZER INC-2011288477

PATIENT

DRUGS (3)
  1. FLAGYL [Suspect]
  2. VANCOMYCIN HCL [Suspect]
  3. DIFICID [Suspect]

REACTIONS (3)
  - CLOSTRIDIUM DIFFICILE COLITIS [None]
  - DIARRHOEA [None]
  - RESPIRATORY FAILURE [None]
